FAERS Safety Report 12859335 (Version 1)
Quarter: 2016Q4

REPORT INFORMATION
  Report Type: Spontaneous
  Country: US (occurrence: US)
  Receive Date: 20161018
  Receipt Date: 20161018
  Transmission Date: 20170207
  Serious: Yes (Other)
  Sender: FDA-Public Use
  Company Number: US-PFIZER INC-2016481345

PATIENT
  Age: 66 Year
  Sex: Male

DRUGS (4)
  1. XTANDI [Interacting]
     Active Substance: ENZALUTAMIDE
     Indication: PROSTATE CANCER
     Dosage: 160 MG, 1X/DAY ((40 MG X 4))
     Dates: end: 201511
  2. XTANDI [Interacting]
     Active Substance: ENZALUTAMIDE
     Dosage: 160 MG, 1X/DAY
     Dates: start: 20160301
  3. XTANDI [Interacting]
     Active Substance: ENZALUTAMIDE
     Dosage: 80 MG, 1X/DAY
     Dates: start: 20151112
  4. GEMFIBROZIL. [Suspect]
     Active Substance: GEMFIBROZIL
     Indication: BLOOD CHOLESTEROL
     Dosage: UNK
     Dates: start: 20151112

REACTIONS (22)
  - Blood glucose increased [Unknown]
  - Abdominal discomfort [Unknown]
  - Hypertension [Unknown]
  - Tooth disorder [Unknown]
  - Fatigue [Not Recovered/Not Resolved]
  - Bronchitis [Recovering/Resolving]
  - Mood altered [Unknown]
  - Drug interaction [Unknown]
  - Blood glucose decreased [Unknown]
  - Blood pressure fluctuation [Recovering/Resolving]
  - Tooth fracture [Unknown]
  - Inguinal hernia [Unknown]
  - Nausea [Unknown]
  - Diarrhoea [Unknown]
  - Insomnia [Not Recovered/Not Resolved]
  - Blood pressure management [Unknown]
  - Hypersomnia [Not Recovered/Not Resolved]
  - Asthenia [Not Recovered/Not Resolved]
  - Nephrolithiasis [Not Recovered/Not Resolved]
  - Abdominal pain upper [Unknown]
  - Weight decreased [Unknown]
  - Headache [Unknown]

NARRATIVE: CASE EVENT DATE: 201511
